FAERS Safety Report 21382373 (Version 4)
Quarter: 2022Q4

REPORT INFORMATION
  Report Type: Other
  Country: US (occurrence: None)
  Receive Date: 20220927
  Receipt Date: 20221013
  Transmission Date: 20230113
  Serious: Yes (Hospitalization, Other)
  Sender: FDA-Public Use
  Company Number: US-ROCHE-3185927

PATIENT
  Age: 57 Year
  Sex: Male
  Weight: 113.50 kg

DRUGS (9)
  1. OCREVUS [Suspect]
     Active Substance: OCRELIZUMAB
     Indication: Primary progressive multiple sclerosis
     Dosage: DATE OF TREATMENT 10/MAR/2021
     Route: 042
  2. OCREVUS [Suspect]
     Active Substance: OCRELIZUMAB
     Dosage: INFUSE OVER 6-7 HRS AND REPEAT AGAIN OVER 15 DAYS,
     Route: 042
  3. ESCITALOPRAM [Concomitant]
     Active Substance: ESCITALOPRAM OXALATE
  4. BACLOFEN [Concomitant]
     Active Substance: BACLOFEN
  5. RITALIN [Concomitant]
     Active Substance: METHYLPHENIDATE HYDROCHLORIDE
  6. MYRBETRIQ [Concomitant]
     Active Substance: MIRABEGRON
  7. AMPYRA [Concomitant]
     Active Substance: DALFAMPRIDINE
  8. METOPROLOL [Concomitant]
     Active Substance: METOPROLOL
  9. SIMVASTATIN [Concomitant]
     Active Substance: SIMVASTATIN

REACTIONS (10)
  - Sepsis [Unknown]
  - Pyrexia [Not Recovered/Not Resolved]
  - Vomiting [Unknown]
  - Abdominal distension [Unknown]
  - Nephrolithiasis [Recovered/Resolved]
  - COVID-19 [Recovering/Resolving]
  - Fall [Unknown]
  - Lower limb fracture [Unknown]
  - Hypertonic bladder [Not Recovered/Not Resolved]
  - Hypertension [Not Recovered/Not Resolved]

NARRATIVE: CASE EVENT DATE: 20190101
